FAERS Safety Report 19156001 (Version 2)
Quarter: 2021Q2

REPORT INFORMATION
  Report Type: Spontaneous
  Country: ID (occurrence: ID)
  Receive Date: 20210420
  Receipt Date: 20210503
  Transmission Date: 20210717
  Serious: Yes (Hospitalization, Other)
  Sender: FDA-Public Use
  Company Number: ID-BEH-2021130654

PATIENT

DRUGS (3)
  1. ALBUMINAR?25 [Suspect]
     Active Substance: ALBUMIN HUMAN
     Indication: HYPOALBUMINAEMIA
     Route: 042
  2. ALBUMINAR?25 [Suspect]
     Active Substance: ALBUMIN HUMAN
     Indication: PREOPERATIVE CARE
  3. NACL [Suspect]
     Active Substance: SODIUM CHLORIDE
     Indication: PRODUCT USED FOR UNKNOWN INDICATION
     Route: 042

REACTIONS (2)
  - Oedema peripheral [Not Recovered/Not Resolved]
  - Extravasation [Unknown]
